FAERS Safety Report 22537559 (Version 2)
Quarter: 2023Q2

REPORT INFORMATION
  Report Type: Spontaneous
  Country: AR (occurrence: AR)
  Receive Date: 20230608
  Receipt Date: 20230622
  Transmission Date: 20230722
  Serious: Yes (Other)
  Sender: FDA-Public Use
  Company Number: AR-PFIZER INC-PV202300096175

PATIENT
  Age: 60 Year
  Sex: Male

DRUGS (2)
  1. IXIFI [Suspect]
     Active Substance: INFLIXIMAB-QBTX
     Dosage: UNK
  2. IXIFI [Suspect]
     Active Substance: INFLIXIMAB-QBTX
     Dosage: EVERY 4 WEEKS

REACTIONS (7)
  - Intestinal haemorrhage [Unknown]
  - Gastrointestinal injury [Not Recovered/Not Resolved]
  - Gastrointestinal disorder [Unknown]
  - Drug ineffective [Unknown]
  - Abdominal pain [Unknown]
  - Discharge [Unknown]
  - Off label use [Unknown]
